FAERS Safety Report 5321363-9 (Version None)
Quarter: 2007Q2

REPORT INFORMATION
  Report Type: 
  Country: None (occurrence: None)
  Receive Date: 20070510
  Receipt Date: 20070503
  Transmission Date: 20071010
  Serious: Yes (Hospitalization)
  Sender: FDA-Public Use
  Company Number: BE-JNJFOC-20070501468

PATIENT
  Age: 78 Year
  Sex: Female

DRUGS (16)
  1. DURAGESIC-100 [Suspect]
     Route: 062
  2. DURAGESIC-100 [Suspect]
     Indication: PAIN
     Dosage: HALF A PATCH
     Route: 062
  3. CITALOPRAM HYDROBROMIDE [Concomitant]
     Route: 065
  4. ZESTRIL [Concomitant]
     Route: 065
  5. ENDRINE [Concomitant]
     Route: 065
  6. ALDACTONE [Concomitant]
     Route: 065
  7. MIRAPEXIN [Concomitant]
     Route: 065
  8. OMEPRAZOLE [Concomitant]
     Route: 065
  9. COMTAN [Concomitant]
     Route: 065
  10. PROLOPA [Concomitant]
     Route: 065
  11. FOSAMAX [Concomitant]
     Route: 065
  12. SINTROM [Concomitant]
     Route: 065
  13. DAFALGAN [Concomitant]
     Route: 065
  14. NITROGLYCERIN [Concomitant]
  15. BURINEX [Concomitant]
     Route: 065
  16. ACETAMINOPHEN AND TRAMADOL HCL [Concomitant]
     Indication: PAIN
     Route: 065

REACTIONS (4)
  - APATHY [None]
  - DEHYDRATION [None]
  - DISORIENTATION [None]
  - PAIN [None]
